FAERS Safety Report 10800691 (Version 3)
Quarter: 2015Q2

REPORT INFORMATION
  Report Type: Spontaneous
  Country: FR (occurrence: FR)
  Receive Date: 20150216
  Receipt Date: 20150416
  Transmission Date: 20150821
  Serious: Yes (Other)
  Sender: FDA-Public Use
  Company Number: FR-WATSON-2015-02990

PATIENT
  Age: 82 Year
  Sex: Female

DRUGS (4)
  1. VALSARTAN ARROW [Suspect]
     Active Substance: VALSARTAN
     Indication: HYPERTENSION
     Dosage: UNK, UNKNOWN
     Route: 048
  2. VALSARTAN-HYDROCHLOROTHIAZIDE (UNKNOWN) [Suspect]
     Active Substance: HYDROCHLOROTHIAZIDE\VALSARTAN
     Indication: HYPERTENSION
     Dosage: UNK, UNKNOWN
     Route: 048
  3. HYPERIUM [Suspect]
     Active Substance: RILMENIDINE PHOSPHATE
     Dosage: 2 UNK, UNKNOWN
     Route: 065
  4. HYPERIUM [Suspect]
     Active Substance: RILMENIDINE PHOSPHATE
     Indication: HYPERTENSION
     Dosage: 2 DF, UNKNOWN
     Route: 048

REACTIONS (11)
  - Blood pressure increased [Not Recovered/Not Resolved]
  - Blood pressure abnormal [Unknown]
  - Dyspnoea [Unknown]
  - Vertigo [Unknown]
  - Muscle disorder [Not Recovered/Not Resolved]
  - Blood sodium decreased [Unknown]
  - Dizziness [Unknown]
  - Pain [Unknown]
  - Tremor [Unknown]
  - Myalgia [Unknown]
  - Anal sphincter atony [Unknown]
